FAERS Safety Report 22859880 (Version 7)
Quarter: 2025Q3

REPORT INFORMATION
  Report Type: Report from Study
  Country: CA (occurrence: None)
  Receive Date: 20230824
  Receipt Date: 20250730
  Transmission Date: 20251021
  Serious: Yes (Hospitalization, Other)
  Sender: ORION
  Company Number: CA-PFIZER INC-202300281548

PATIENT
  Sex: Male

DRUGS (19)
  1. METHOTREXATE [Suspect]
     Active Substance: METHOTREXATE
     Indication: Product used for unknown indication
  2. HUMIRA [Suspect]
     Active Substance: ADALIMUMAB
     Indication: Uveitis
  3. HUMIRA [Suspect]
     Active Substance: ADALIMUMAB
  4. HUMIRA [Suspect]
     Active Substance: ADALIMUMAB
  5. HUMIRA [Suspect]
     Active Substance: ADALIMUMAB
  6. HUMIRA [Suspect]
     Active Substance: ADALIMUMAB
  7. HUMIRA [Suspect]
     Active Substance: ADALIMUMAB
     Dosage: CYCLICAL
  8. HULIO [Suspect]
     Active Substance: ADALIMUMAB-FKJP
     Indication: Uveitis
  9. HULIO [Suspect]
     Active Substance: ADALIMUMAB-FKJP
  10. HULIO [Suspect]
     Active Substance: ADALIMUMAB-FKJP
  11. HULIO [Suspect]
     Active Substance: ADALIMUMAB-FKJP
  12. HULIO [Suspect]
     Active Substance: ADALIMUMAB-FKJP
  13. HULIO [Suspect]
     Active Substance: ADALIMUMAB-FKJP
  14. HULIO [Suspect]
     Active Substance: ADALIMUMAB-FKJP
  15. HULIO [Suspect]
     Active Substance: ADALIMUMAB-FKJP
  16. HULIO [Suspect]
     Active Substance: ADALIMUMAB-FKJP
  17. HULIO [Suspect]
     Active Substance: ADALIMUMAB-FKJP
  18. HULIO [Suspect]
     Active Substance: ADALIMUMAB-FKJP
  19. HULIO [Suspect]
     Active Substance: ADALIMUMAB-FKJP

REACTIONS (14)
  - Product storage error [Unknown]
  - Product packaging issue [Unknown]
  - Inappropriate schedule of product administration [Unknown]
  - Therapy interrupted [Unknown]
  - Treatment noncompliance [Unknown]
  - Circumstance or information capable of leading to medication error [Unknown]
  - Depression [Unknown]
  - Nasopharyngitis [Unknown]
  - Viral infection [Unknown]
  - Uveitis [Unknown]
  - COVID-19 [Unknown]
  - Pneumonitis [Unknown]
  - Adverse drug reaction [Unknown]
  - Product complaint [Unknown]
